FAERS Safety Report 16056024 (Version 1)
Quarter: 2019Q1

REPORT INFORMATION
  Report Type: Spontaneous
  Country: US (occurrence: US)
  Receive Date: 20190208
  Receipt Date: 20190208
  Transmission Date: 20190418
  Serious: Yes (Other)
  Sender: FDA-Public Use
  Company Number: None

PATIENT
  Age: 45 Year
  Sex: Male
  Weight: 92.08 kg

DRUGS (3)
  1. CUBICIN RF [Suspect]
     Active Substance: DAPTOMYCIN
     Indication: OSTEOMYELITIS ACUTE
     Route: 042
     Dates: start: 20190118, end: 20190130
  2. CUBICIN RF [Suspect]
     Active Substance: DAPTOMYCIN
     Indication: CELLULITIS
     Route: 042
     Dates: start: 20190118, end: 20190130
  3. CUBICIN [Suspect]
     Active Substance: DAPTOMYCIN
     Indication: OSTEOMYELITIS ACUTE
     Dates: start: 20190130

REACTIONS (4)
  - Aspartate aminotransferase increased [None]
  - C-reactive protein increased [None]
  - Alanine aminotransferase increased [None]
  - Blood creatine phosphokinase increased [None]

NARRATIVE: CASE EVENT DATE: 20190130
